FAERS Safety Report 16189656 (Version 3)
Quarter: 2019Q2

REPORT INFORMATION
  Report Type: Report from Study
  Country: US (occurrence: US)
  Receive Date: 20190412
  Receipt Date: 20190612
  Transmission Date: 20190711
  Serious: Yes (Hospitalization, Other)
  Sender: FDA-Public Use
  Company Number: US-GILEAD-2019-0401703

PATIENT
  Age: 45 Year
  Sex: Male

DRUGS (3)
  1. ELIQUIS [Concomitant]
     Active Substance: APIXABAN
  2. AMBRISENTAN [Suspect]
     Active Substance: AMBRISENTAN
     Indication: PULMONARY ARTERIAL HYPERTENSION
     Dosage: 10 MG, QD
     Route: 048
     Dates: start: 20171206
  3. VELETRI [Concomitant]
     Active Substance: EPOPROSTENOL

REACTIONS (10)
  - Dizziness [Unknown]
  - Dyspnoea [Unknown]
  - Catheter site pain [Unknown]
  - Flushing [Unknown]
  - Pain in extremity [Unknown]
  - Central venous catheterisation [Unknown]
  - Wound complication [Unknown]
  - Weight increased [Unknown]
  - Catheter site erythema [Unknown]
  - Abdominal distension [Unknown]
